FAERS Safety Report 9446625 (Version 2)
Quarter: 2013Q3

REPORT INFORMATION
  Report Type: Spontaneous
  Country: US (occurrence: US)
  Receive Date: 20130807
  Receipt Date: 20130904
  Transmission Date: 20140515
  Serious: Yes (Other)
  Sender: FDA-Public Use
  Company Number: US-AMGEN-USASP2013052325

PATIENT
  Age: 50 Year
  Sex: Female
  Weight: 93.42 kg

DRUGS (2)
  1. ENBREL [Suspect]
     Indication: RHEUMATOID ARTHRITIS
     Dosage: 50 MG, QWK
     Route: 058
     Dates: start: 20001205
  2. PREDNISONE [Concomitant]
     Dosage: UNK

REACTIONS (6)
  - Abscess [Recovered/Resolved]
  - Lung infection [Unknown]
  - Abdominal abscess [Recovered/Resolved]
  - Foot fracture [Unknown]
  - Sinusitis [Recovered/Resolved]
  - Skin infection [Unknown]
